FAERS Safety Report 25904353 (Version 1)
Quarter: 2025Q4

REPORT INFORMATION
  Report Type: Spontaneous
  Country: US (occurrence: US)
  Receive Date: 20251010
  Receipt Date: 20251010
  Transmission Date: 20260117
  Serious: Yes (Other)
  Sender: SANDOZ
  Company Number: US-002147023-NVSC2020US342351

PATIENT
  Age: 61 Year
  Sex: Female

DRUGS (10)
  1. MYCOPHENOLATE MOFETIL [Suspect]
     Active Substance: MYCOPHENOLATE MOFETIL
     Indication: Nephrotic syndrome
     Dosage: UNK
     Route: 065
  2. MYCOPHENOLATE MOFETIL [Suspect]
     Active Substance: MYCOPHENOLATE MOFETIL
     Indication: Acute kidney injury
  3. MYCOPHENOLATE MOFETIL [Suspect]
     Active Substance: MYCOPHENOLATE MOFETIL
     Indication: C3 glomerulopathy
  4. CYCLOPHOSPHAMIDE [Concomitant]
     Active Substance: CYCLOPHOSPHAMIDE
     Indication: Acute kidney injury
     Dosage: UNK
     Route: 042
     Dates: start: 2015
  5. PREDNISONE [Concomitant]
     Active Substance: PREDNISONE
     Indication: Nephrotic syndrome
     Dosage: UNK
     Route: 065
     Dates: start: 2015
  6. PREDNISONE [Concomitant]
     Active Substance: PREDNISONE
     Indication: Acute kidney injury
  7. PREDNISONE [Concomitant]
     Active Substance: PREDNISONE
     Indication: C3 glomerulopathy
  8. TACROLIMUS [Concomitant]
     Active Substance: TACROLIMUS
     Indication: Nephrotic syndrome
     Dosage: UNK
     Route: 065
     Dates: start: 2014
  9. TACROLIMUS [Concomitant]
     Active Substance: TACROLIMUS
     Indication: Acute kidney injury
  10. TACROLIMUS [Concomitant]
     Active Substance: TACROLIMUS
     Indication: C3 glomerulopathy

REACTIONS (2)
  - Diarrhoea [Unknown]
  - Product use in unapproved indication [Unknown]
